FAERS Safety Report 11249725 (Version 1)
Quarter: 2015Q3

REPORT INFORMATION
  Report Type: Spontaneous
  Country: US (occurrence: US)
  Receive Date: 20150708
  Receipt Date: 20150708
  Transmission Date: 20151125
  Serious: Yes (Other)
  Sender: FDA-Public Use
  Company Number: US-ELI_LILLY_AND_COMPANY-US200905000466

PATIENT
  Age: 10 Year
  Sex: Female

DRUGS (2)
  1. GEMZAR [Suspect]
     Active Substance: GEMCITABINE HYDROCHLORIDE
     Indication: OSTEOSARCOMA RECURRENT
     Dosage: 878 MG,OTHER: 675,G/M2
     Dates: start: 20090407, end: 20090504
  2. DOCETAXEL. [Concomitant]
     Active Substance: DOCETAXEL
     Indication: OSTEOSARCOMA RECURRENT
     Dosage: 100 MG/M2, UNK
     Dates: start: 20090413, end: 20090504

REACTIONS (3)
  - Aspartate aminotransferase increased [Recovered/Resolved]
  - Alanine aminotransferase increased [Recovered/Resolved]
  - Malignant neoplasm progression [Unknown]

NARRATIVE: CASE EVENT DATE: 200905
